FAERS Safety Report 8623034-X (Version None)
Quarter: 2012Q3

REPORT INFORMATION
  Report Type: 
  Country: None (occurrence: None)
  Receive Date: 20120827
  Receipt Date: 20120814
  Transmission Date: 20120928
  Serious: Yes (Other)
  Sender: FDA-Public Use
  Company Number: FR-NOVOPROD-358466

PATIENT
  Age: 77 Year
  Sex: Female

DRUGS (14)
  1. LEVOTHYROXINE SODIUM [Concomitant]
  2. IMOVANE [Concomitant]
  3. OXYCODONE HYDROCHLORIDE [Concomitant]
  4. CALCIPARINE [Concomitant]
     Dates: end: 20120526
  5. ASPIRIN [Concomitant]
  6. FRAXIPARINE                        /01437701/ [Concomitant]
     Dates: start: 20120526
  7. CORDARONE [Concomitant]
  8. LASIX [Concomitant]
  9. REPAGLINIDE [Suspect]
     Indication: TYPE 2 DIABETES MELLITUS
     Dosage: UNKNOWN
     Route: 048
     Dates: end: 20120604
  10. ACETAMINOPHEN [Concomitant]
  11. NEXIUM [Concomitant]
  12. ACUPAN [Concomitant]
  13. OSTRAM                             /00183801/ [Concomitant]
  14. EFFEXOR [Concomitant]

REACTIONS (1)
  - CYTOLYTIC HEPATITIS [None]
